FAERS Safety Report 19226447 (Version 1)
Quarter: 2021Q2

REPORT INFORMATION
  Report Type: Report from Study
  Country: None (occurrence: US)
  Receive Date: 20210505
  Receipt Date: 20210505
  Transmission Date: 20210717
  Serious: Yes (Hospitalization)
  Sender: FDA-Public Use
  Company Number: US-ABBVIE-21K-163-3884596-00

PATIENT
  Age: 16 Year
  Sex: Male

DRUGS (1)
  1. HUMIRA [Suspect]
     Active Substance: ADALIMUMAB
     Indication: PRODUCT USED FOR UNKNOWN INDICATION
     Dosage: CF
     Route: 058

REACTIONS (7)
  - Seizure [Recovered/Resolved]
  - Face injury [Unknown]
  - Syncope [Recovered/Resolved]
  - Musculoskeletal discomfort [Unknown]
  - Fall [Unknown]
  - Muscle twitching [Unknown]
  - Head discomfort [Unknown]

NARRATIVE: CASE EVENT DATE: 20210428
